FAERS Safety Report 12265995 (Version 2)
Quarter: 2016Q2

REPORT INFORMATION
  Report Type: Report from Study
  Country: CA (occurrence: CA)
  Receive Date: 20160413
  Receipt Date: 20160421
  Transmission Date: 20160815
  Serious: Yes (Hospitalization, Other)
  Sender: FDA-Public Use
  Company Number: CA-GILEAD-2016-0207179

PATIENT
  Age: 62 Year
  Sex: Male

DRUGS (1)
  1. LEDIPASVIR/SOFOSBUVIR [Suspect]
     Active Substance: LEDIPASVIR\SOFOSBUVIR
     Indication: HEPATITIS C
     Dosage: 1 DF, UNK
     Route: 048
     Dates: start: 20160120

REACTIONS (6)
  - Encephalopathy [Unknown]
  - Intestinal obstruction [Unknown]
  - Vomiting [Unknown]
  - Fall [Unknown]
  - Ankle fracture [Unknown]
  - Disorientation [Unknown]

NARRATIVE: CASE EVENT DATE: 2016
